FAERS Safety Report 13340896 (Version 2)
Quarter: 2017Q1

REPORT INFORMATION
  Report Type: Spontaneous
  Country: IT (occurrence: IT)
  Receive Date: 20170316
  Receipt Date: 20170328
  Transmission Date: 20170428
  Serious: Yes (Other)
  Sender: FDA-Public Use
  Company Number: IT-TEVA-748743ACC

PATIENT

DRUGS (1)
  1. OLANZAPINA [Suspect]
     Active Substance: OLANZAPINE

REACTIONS (11)
  - Weight increased [Unknown]
  - Somnolence [Unknown]
  - Constipation [Unknown]
  - Drug reaction with eosinophilia and systemic symptoms [Unknown]
  - Hyperlipidaemia [Unknown]
  - Orthostatic hypotension [Unknown]
  - Diabetes mellitus [Unknown]
  - Metabolic disorder [Unknown]
  - Akathisia [Unknown]
  - Transaminases increased [Unknown]
  - Dizziness [Unknown]
